FAERS Safety Report 24129084 (Version 1)
Quarter: 2024Q3

REPORT INFORMATION
  Report Type: Spontaneous
  Country: US (occurrence: None)
  Receive Date: 20240722
  Receipt Date: 20240722
  Transmission Date: 20241017
  Serious: Yes (Other)
  Sender: Public
  Company Number: None

PATIENT
  Age: 75 Year
  Sex: Male
  Weight: 76 kg

DRUGS (1)
  1. LECANEMAB [Suspect]
     Active Substance: LECANEMAB
     Indication: Dementia Alzheimer^s type
     Dosage: OTHER FREQUENCY : Q 2 WEEKS;?
     Route: 042
     Dates: start: 20240226

REACTIONS (1)
  - Contusion [None]

NARRATIVE: CASE EVENT DATE: 20240715
